FAERS Safety Report 19899342 (Version 5)
Quarter: 2022Q1

REPORT INFORMATION
  Report Type: Report from Study
  Country: US (occurrence: US)
  Receive Date: 20210929
  Receipt Date: 20220303
  Transmission Date: 20220423
  Serious: Yes (Hospitalization)
  Sender: FDA-Public Use
  Company Number: US-EXELIXIS-CABO-21044372

PATIENT
  Age: 56 Year
  Sex: Female

DRUGS (2)
  1. CABOMETYX [Suspect]
     Active Substance: CABOZANTINIB S-MALATE
     Indication: Renal cancer
     Dosage: 40 MG, QD
     Route: 048
     Dates: start: 20210827, end: 202109
  2. CABOMETYX [Suspect]
     Active Substance: CABOZANTINIB S-MALATE
     Dosage: 40 MG, QD
     Route: 048
     Dates: start: 202109, end: 20220223

REACTIONS (17)
  - Thyroid hormones increased [Unknown]
  - Hypoglycaemia [Not Recovered/Not Resolved]
  - Hypokalaemia [Unknown]
  - Dry mouth [Unknown]
  - Diarrhoea [Unknown]
  - Nausea [Recovering/Resolving]
  - Fatigue [Unknown]
  - Vomiting [Not Recovered/Not Resolved]
  - Hypertension [Unknown]
  - Haematuria [Unknown]
  - Joint stiffness [Unknown]
  - Joint swelling [Unknown]
  - Peripheral swelling [Unknown]
  - Anxiety [Unknown]
  - Pain in extremity [Unknown]
  - Constipation [Not Recovered/Not Resolved]
  - Dyspnoea [Unknown]

NARRATIVE: CASE EVENT DATE: 20210909
